FAERS Safety Report 21364734 (Version 1)
Quarter: 2022Q3

REPORT INFORMATION
  Report Type: Report from Study
  Country: AU (occurrence: AU)
  Receive Date: 20220922
  Receipt Date: 20220922
  Transmission Date: 20221026
  Serious: Yes (Hospitalization, Other)
  Sender: FDA-Public Use
  Company Number: AU-BRISTOL-MYERS SQUIBB COMPANY-2022-109690

PATIENT
  Age: 78 Year
  Sex: Female

DRUGS (1)
  1. OPDIVO [Suspect]
     Active Substance: NIVOLUMAB
     Indication: Non-small cell lung cancer
     Dosage: MONTHLY
     Route: 042

REACTIONS (10)
  - Circulatory collapse [Recovered/Resolved]
  - Tinnitus [Recovered/Resolved]
  - Loss of consciousness [Recovered/Resolved]
  - Pain [Recovered/Resolved]
  - Staring [Recovered/Resolved]
  - Orthostatic hypotension [Recovered/Resolved]
  - Body temperature increased [Recovered/Resolved]
  - C-reactive protein increased [Recovered/Resolved]
  - Fall [Recovered/Resolved]
  - Trismus [Recovered/Resolved]

NARRATIVE: CASE EVENT DATE: 20220905
